FAERS Safety Report 17220099 (Version 1)
Quarter: 2019Q4

REPORT INFORMATION
  Report Type: Spontaneous
  Country: SI (occurrence: SI)
  Receive Date: 20191231
  Receipt Date: 20191231
  Transmission Date: 20200122
  Serious: Yes (Other)
  Sender: FDA-Public Use
  Company Number: SI-GLAXOSMITHKLINE-SI2019235681

PATIENT
  Age: 60 Year
  Sex: Female

DRUGS (3)
  1. KARBOX [Suspect]
     Active Substance: OXCARBAZEPINE
     Indication: EPILEPSY
     Dosage: 300 MG, QOD
     Route: 048
  2. RIVOTRIL [Suspect]
     Active Substance: CLONAZEPAM
     Indication: EPILEPSY
     Dosage: 1 DF, QOD
     Route: 048
  3. LAMICTAL [Suspect]
     Active Substance: LAMOTRIGINE
     Indication: EPILEPSY
     Dosage: 100 MG, QOD
     Route: 048

REACTIONS (8)
  - Nocturia [Unknown]
  - Hyponatraemia [Unknown]
  - Fluid retention [Unknown]
  - Drug dependence [Unknown]
  - Hypokalaemia [Unknown]
  - Hypochloraemia [Unknown]
  - Drug withdrawal syndrome [Unknown]
  - Haemorrhage [Unknown]

NARRATIVE: CASE EVENT DATE: 2019
